FAERS Safety Report 13617823 (Version 2)
Quarter: 2017Q3

REPORT INFORMATION
  Report Type: Spontaneous
  Country: US (occurrence: US)
  Receive Date: 20170606
  Receipt Date: 20170815
  Transmission Date: 20171127
  Serious: Yes (Other)
  Sender: FDA-Public Use
  Company Number: US-SUPERNUS PHARMACEUTICALS, INC.-2017SUP00130

PATIENT
  Sex: Female
  Weight: 94.33 kg

DRUGS (6)
  1. EXCEDRIN [Concomitant]
     Active Substance: ACETAMINOPHEN\ASPIRIN\CAFFEINE
     Dosage: UNK, AS NEEDED
  2. LAMICTAL [Suspect]
     Active Substance: LAMOTRIGINE
     Dosage: UNK, AS NEEDED
  3. LORAZEPAM. [Concomitant]
     Active Substance: LORAZEPAM
     Dosage: UNK, AS NEEDED
  4. ONFI [Concomitant]
     Active Substance: CLOBAZAM
     Indication: SEIZURE
  5. OXTELLAR XR [Suspect]
     Active Substance: OXCARBAZEPINE
     Indication: EPILEPSY
     Dosage: 600 MG, 1X/DAY
     Route: 048
  6. OXTELLAR XR [Suspect]
     Active Substance: OXCARBAZEPINE
     Dosage: 600 MG, 2X/DAY
     Route: 048
     Dates: start: 201611

REACTIONS (3)
  - Dizziness [Recovering/Resolving]
  - Seizure [Not Recovered/Not Resolved]
  - Incorrect dose administered [Unknown]
